FAERS Safety Report 25631264 (Version 1)
Quarter: 2025Q3

REPORT INFORMATION
  Report Type: Spontaneous
  Country: JP (occurrence: JP)
  Receive Date: 20250801
  Receipt Date: 20250801
  Transmission Date: 20251021
  Serious: Yes (Hospitalization)
  Sender: SANOFI AVENTIS
  Company Number: JP-SA-2025SA220051

PATIENT
  Age: 22 Year
  Sex: Female

DRUGS (2)
  1. AMARYL [Suspect]
     Active Substance: GLIMEPIRIDE
     Indication: Suicidal ideation
     Route: 048
  2. TOFOGLIFLOZIN [Suspect]
     Active Substance: TOFOGLIFLOZIN
     Indication: Suicidal ideation
     Route: 048

REACTIONS (3)
  - Glucose urine present [Unknown]
  - Hypoglycaemia [Unknown]
  - Intentional overdose [Unknown]
